FAERS Safety Report 8843422 (Version 1)
Quarter: 2012Q4

REPORT INFORMATION
  Report Type: 
  Country: US (occurrence: US)
  Receive Date: 20121016
  Receipt Date: 20121016
  Transmission Date: 20130627
  Serious: Yes (Other)
  Sender: FDA-Public Use
  Company Number: US-ELI_LILLY_AND_COMPANY-US201210003373

PATIENT
  Age: 60 Year
  Sex: Female

DRUGS (2)
  1. EFFIENT [Suspect]
     Indication: STENT PLACEMENT
     Dosage: 60 mg, single loading dose
     Route: 048
     Dates: start: 20120111, end: 20120111
  2. EFFIENT [Suspect]
     Dosage: 10 mg, qd
     Route: 048
     Dates: start: 20120112, end: 20121009

REACTIONS (1)
  - Ischaemic stroke [Recovered/Resolved with Sequelae]
